FAERS Safety Report 25473362 (Version 1)
Quarter: 2025Q2

REPORT INFORMATION
  Report Type: Spontaneous
  Country: FR (occurrence: FR)
  Receive Date: 20250624
  Receipt Date: 20250624
  Transmission Date: 20250716
  Serious: Yes (Other)
  Sender: PFIZER
  Company Number: None

PATIENT
  Age: 62 Year
  Sex: Female

DRUGS (10)
  1. PIPERACILLIN SODIUM\TAZOBACTAM SODIUM [Suspect]
     Active Substance: PIPERACILLIN SODIUM\TAZOBACTAM SODIUM
     Dosage: 4 G, 3X/DAY (EVERY 8 HOURS)
     Route: 042
     Dates: start: 20250313, end: 20250320
  2. PIPERACILLIN SODIUM\TAZOBACTAM SODIUM [Suspect]
     Active Substance: PIPERACILLIN SODIUM\TAZOBACTAM SODIUM
     Dosage: 4 G, 3X/DAY (EVERY 8 HOURS)
     Route: 042
     Dates: start: 20250327, end: 20250330
  3. MORPHINE [Suspect]
     Active Substance: MORPHINE
     Indication: Pain
     Route: 042
     Dates: start: 20250303, end: 20250314
  4. MORPHINE [Suspect]
     Active Substance: MORPHINE
     Route: 042
     Dates: start: 20250314, end: 20250318
  5. MORPHINE [Suspect]
     Active Substance: MORPHINE
     Route: 042
     Dates: start: 20250318, end: 20250320
  6. MORPHINE [Suspect]
     Active Substance: MORPHINE
     Route: 042
     Dates: start: 20250320, end: 20250327
  7. MORPHINE [Suspect]
     Active Substance: MORPHINE
     Route: 042
     Dates: start: 20250327, end: 20250328
  8. CEFEPIME [Suspect]
     Active Substance: CEFEPIME HYDROCHLORIDE
     Dosage: 2 G, 3X/DAY (EVERY 8 HOURS)
     Route: 042
     Dates: start: 20250301, end: 20250313
  9. NEFOPAM HYDROCHLORIDE [Suspect]
     Active Substance: NEFOPAM HYDROCHLORIDE
     Dosage: 120 MG, DAILY
     Route: 042
     Dates: start: 20250228, end: 20250320
  10. ONDANSETRON [Concomitant]
     Active Substance: ONDANSETRON
     Dosage: 16 MG, DAILY
     Route: 042
     Dates: start: 20250303, end: 20250321

REACTIONS (1)
  - Encephalopathy [Recovered/Resolved]

NARRATIVE: CASE EVENT DATE: 20250301
